FAERS Safety Report 15561578 (Version 3)
Quarter: 2018Q4

REPORT INFORMATION
  Report Type: Spontaneous
  Country: CN (occurrence: CN)
  Receive Date: 20181029
  Receipt Date: 20181211
  Transmission Date: 20190205
  Serious: Yes (Hospitalization, Other)
  Sender: FDA-Public Use
  Company Number: CN-GLAXOSMITHKLINE-CN2018GSK196331

PATIENT
  Age: 57 Year
  Sex: Male
  Weight: 60 kg

DRUGS (3)
  1. SERETIDE [Suspect]
     Active Substance: FLUTICASONE PROPIONATE\SALMETEROL XINAFOATE
     Indication: EMPHYSEMA
  2. SERETIDE [Suspect]
     Active Substance: FLUTICASONE PROPIONATE\SALMETEROL XINAFOATE
     Indication: CHRONIC OBSTRUCTIVE PULMONARY DISEASE
     Dosage: 1 PUFF(S), BID, 50/250UG, 50/500 UG
     Route: 055
  3. SERETIDE [Suspect]
     Active Substance: FLUTICASONE PROPIONATE\SALMETEROL XINAFOATE
     Indication: CYSTIC LUNG DISEASE

REACTIONS (6)
  - Asthenia [Recovered/Resolved]
  - Product use in unapproved indication [Unknown]
  - Pneumonia [Unknown]
  - Lethargy [Recovered/Resolved]
  - Dyspnoea [Unknown]
  - Product prescribing issue [Unknown]
